FAERS Safety Report 8024464-X (Version None)
Quarter: 2012Q1

REPORT INFORMATION
  Report Type: 
  Country: None (occurrence: None)
  Receive Date: 20120105
  Receipt Date: 20111222
  Transmission Date: 20120608
  Serious: Yes (Hospitalization, Other)
  Sender: FDA-Public Use
  Company Number: US-UCBSA-038705

PATIENT
  Age: 31 Year
  Sex: Female
  Weight: 82.3 kg

DRUGS (8)
  1. LACOSAMIDE [Suspect]
     Indication: IDIOPATHIC GENERALISED EPILEPSY
     Dosage: PREVIOUS DOSAGE 100 MG, 200 MG, 300 MG
     Route: 048
     Dates: start: 20110718, end: 20110801
  2. METRONIDAZOLE [Concomitant]
     Indication: VAGINAL DISCHARGE
     Route: 048
     Dates: start: 20110709
  3. KEPPRA [Concomitant]
     Dosage: DOSE INCREASED
     Dates: start: 20110101, end: 20110101
  4. KEPPRA [Concomitant]
     Indication: EPILEPSY
     Route: 048
     Dates: start: 20110307, end: 20110808
  5. TOPIRAMATE [Concomitant]
     Indication: EPILEPSY
     Route: 048
     Dates: start: 20110330, end: 20110101
  6. ACETAMINOPHEN [Concomitant]
     Indication: HEADACHE
     Dosage: AS NECESSARY
     Route: 048
     Dates: start: 19980101
  7. KEPPRA [Concomitant]
     Route: 048
     Dates: start: 20110101
  8. TOPIRAMATE [Concomitant]
     Route: 048
     Dates: start: 20110101

REACTIONS (1)
  - PETIT MAL EPILEPSY [None]
